FAERS Safety Report 7779736-0 (Version None)
Quarter: 2011Q3

REPORT INFORMATION
  Report Type: 
  Country: None (occurrence: None)
  Receive Date: 20110927
  Receipt Date: 20100802
  Transmission Date: 20111222
  Serious: Yes (Other)
  Sender: FDA-Public Use
  Company Number: US-ASTRAZENECA-2010SE11313

PATIENT
  Age: 63 Year
  Sex: Female
  Weight: 121.1 kg

DRUGS (18)
  1. SEROQUEL [Suspect]
     Route: 048
     Dates: start: 20100308
  2. LOVASTATIN [Concomitant]
     Indication: BLOOD CHOLESTEROL
  3. ENALAPRIL MALEATE [Concomitant]
     Indication: HYPERTENSION
  4. FENTANYL [Concomitant]
     Indication: PAIN
  5. SEROQUEL [Suspect]
     Route: 048
     Dates: start: 20100308
  6. SEROQUEL [Suspect]
     Route: 048
  7. SEROQUEL [Suspect]
     Route: 048
  8. LIDOCAINE [Concomitant]
     Indication: PAIN
  9. OXYCODONE [Concomitant]
     Indication: PAIN
     Dosage: 5 MG/3  25 MG, Q4-6H
  10. SEROQUEL [Suspect]
     Indication: BIPOLAR I DISORDER
     Route: 048
     Dates: start: 20090101, end: 20100307
  11. SEROQUEL [Suspect]
     Route: 048
  12. PLAVIX [Concomitant]
     Indication: THROMBOSIS
  13. HYDROCHOLOROTHYZIDE [Concomitant]
     Indication: HYPERTENSION
  14. PERCOCET [Concomitant]
  15. SEROQUEL [Suspect]
     Indication: PANIC ATTACK
     Route: 048
     Dates: start: 20090101, end: 20100307
  16. SEROQUEL [Suspect]
     Indication: ANXIETY
     Route: 048
     Dates: start: 20090101, end: 20100307
  17. SEROQUEL [Suspect]
     Route: 048
     Dates: start: 20100308
  18. VALIUM [Concomitant]
     Indication: CONVULSION

REACTIONS (13)
  - PANIC ATTACK [None]
  - DRUG INEFFECTIVE [None]
  - CONVULSION [None]
  - EMOTIONAL DISTRESS [None]
  - LIMB INJURY [None]
  - DIZZINESS [None]
  - MALAISE [None]
  - DRUG DOSE OMISSION [None]
  - INSOMNIA [None]
  - FEELING ABNORMAL [None]
  - PANIC REACTION [None]
  - FALL [None]
  - HYPERHIDROSIS [None]
